FAERS Safety Report 7801407-2 (Version None)
Quarter: 2011Q4

REPORT INFORMATION
  Report Type: 
  Country: None (occurrence: None)
  Receive Date: 20111006
  Receipt Date: 20111006
  Transmission Date: 20120403
  Serious: Yes (Hospitalization)
  Sender: FDA-Public Use
  Company Number: None

PATIENT
  Age: 57 Year
  Sex: Female
  Weight: 60.2 kg

DRUGS (7)
  1. PREMARIN [Concomitant]
  2. EFFEXOR [Suspect]
     Indication: DEPRESSION
     Dosage: 37.5MG DAILY PO CHRONIC RECENT INCREASE
     Route: 048
  3. FENTANYL [Concomitant]
  4. SYNTHROID [Concomitant]
  5. LYRICA [Concomitant]
  6. EFFEXOR [Suspect]
     Indication: DEPRESSION
     Dosage: 300MG (75MG X4) DAILY PO CHRONIC
     Route: 048
  7. PERCOCET [Concomitant]

REACTIONS (3)
  - ACCIDENTAL OVERDOSE [None]
  - MENTAL STATUS CHANGES [None]
  - SOMATOFORM DISORDER [None]
